FAERS Safety Report 17787207 (Version 1)
Quarter: 2020Q2

REPORT INFORMATION
  Report Type: Report from Study
  Country: US (occurrence: US)
  Receive Date: 20200514
  Receipt Date: 20200514
  Transmission Date: 20200714
  Serious: Yes (Other)
  Sender: FDA-Public Use
  Company Number: US-JNJFOC-20200243256

PATIENT
  Sex: Female

DRUGS (2)
  1. STELARA [Suspect]
     Active Substance: USTEKINUMAB
     Route: 058
     Dates: start: 20200211
  2. STELARA [Suspect]
     Active Substance: USTEKINUMAB
     Indication: CROHN^S DISEASE
     Route: 042
     Dates: start: 201912

REACTIONS (5)
  - Crohn^s disease [Not Recovered/Not Resolved]
  - Nasopharyngitis [Recovering/Resolving]
  - Inappropriate schedule of product administration [Unknown]
  - SARS-CoV-2 test negative [Unknown]
  - Stress [Unknown]
